FAERS Safety Report 25618116 (Version 1)
Quarter: 2025Q3

REPORT INFORMATION
  Report Type: Spontaneous
  Country: US (occurrence: US)
  Receive Date: 20250729
  Receipt Date: 20250729
  Transmission Date: 20251020
  Serious: No
  Sender: SANOFI AVENTIS
  Company Number: US-SA-2025SA215403

PATIENT
  Age: 39 Year
  Sex: Male

DRUGS (3)
  1. DUPIXENT [Suspect]
     Active Substance: DUPILUMAB
     Indication: Nasal polyps
     Dosage: 300 MG, QOW
     Route: 058
     Dates: start: 202505
  2. BUDESONIDE [Concomitant]
     Active Substance: BUDESONIDE
     Indication: Nasal polypectomy
     Dates: start: 20250717
  3. AMOXICILLIN [Concomitant]
     Active Substance: AMOXICILLIN
     Indication: Nasal polypectomy
     Dates: start: 20250717

REACTIONS (4)
  - Nasal congestion [Unknown]
  - Nasal obstruction [Unknown]
  - Anosmia [Unknown]
  - Post procedural complication [Unknown]

NARRATIVE: CASE EVENT DATE: 20250101
